FAERS Safety Report 22173137 (Version 3)
Quarter: 2023Q2

REPORT INFORMATION
  Report Type: Report from Study
  Country: US (occurrence: US)
  Receive Date: 20230404
  Receipt Date: 20230522
  Transmission Date: 20230721
  Serious: Yes (Other)
  Sender: FDA-Public Use
  Company Number: US-ABBVIE-4715044

PATIENT
  Sex: Female

DRUGS (8)
  1. VENCLEXTA [Suspect]
     Active Substance: VENETOCLAX
     Indication: Myelodysplastic syndrome with excess blasts
     Route: 048
  2. VENCLEXTA [Suspect]
     Active Substance: VENETOCLAX
     Indication: Myelodysplastic syndrome with excess blasts
     Route: 048
  3. FLUTICASONE [Concomitant]
     Active Substance: FLUTICASONE
     Indication: Product used for unknown indication
     Dosage: 50MCG/ACTUATION SPRAY SUSPENSION, 2 SPRAY NASAL DAILY, FORM STRENGTH: 50 MICROGRAM
     Route: 045
  4. VALSARTAN [Concomitant]
     Active Substance: VALSARTAN
     Indication: Product used for unknown indication
     Dosage: 1.5 TAB PO DAILY, FORM STRENGTH: 160 MILLIGRAM
     Route: 048
  5. FUROSEMIDE [Concomitant]
     Active Substance: FUROSEMIDE
     Indication: Product used for unknown indication
     Dosage: 20 MG TABLETS 1 TAB PO DAILY, FORM STRENGTH: 20 MILLIGRAM
     Route: 048
  6. IVOSIDENIB [Concomitant]
     Active Substance: IVOSIDENIB
     Indication: Product used for unknown indication
     Dosage: FORM STRENGTH: 250 MILLIGRAM
     Route: 048
  7. DAPSONE [Concomitant]
     Active Substance: DAPSONE
     Indication: Product used for unknown indication
     Route: 048
  8. TAVIST ALLERGY [Concomitant]
     Active Substance: CLEMASTINE FUMARATE
     Indication: Product used for unknown indication
     Dosage: 2 PILLS AT BEDTIME
     Route: 048

REACTIONS (2)
  - Platelet transfusion [Unknown]
  - Off label use [Unknown]
